FAERS Safety Report 7550367-0 (Version None)
Quarter: 2011Q2

REPORT INFORMATION
  Report Type: 
  Country: None (occurrence: None)
  Receive Date: 20110615
  Receipt Date: 20110607
  Transmission Date: 20111010
  Serious: Yes (Other)
  Sender: FDA-Public Use
  Company Number: US-ROCHE-743253

PATIENT
  Sex: Male
  Weight: 68 kg

DRUGS (3)
  1. ACCUTANE [Suspect]
     Route: 065
     Dates: start: 19840101, end: 19840601
  2. ACETAMINOPHEN [Concomitant]
  3. ACCUTANE [Suspect]
     Route: 065
     Dates: start: 19830101

REACTIONS (6)
  - DEPRESSION [None]
  - IRRITABLE BOWEL SYNDROME [None]
  - PERIRECTAL ABSCESS [None]
  - CROHN'S DISEASE [None]
  - INFLAMMATORY BOWEL DISEASE [None]
  - GASTROINTESTINAL INJURY [None]
